FAERS Safety Report 7784372-6 (Version None)
Quarter: 2011Q3

REPORT INFORMATION
  Report Type: 
  Country: None (occurrence: None)
  Receive Date: 20110928
  Receipt Date: 20110921
  Transmission Date: 20111222
  Serious: Yes (Other)
  Sender: FDA-Public Use
  Company Number: PHEH2011US04029

PATIENT
  Sex: Male
  Weight: 87.528 kg

DRUGS (2)
  1. MORPHINE SULFATE [Concomitant]
     Indication: PAIN
     Dosage: 30 MG, UNK
     Dates: start: 20110809
  2. EXJADE [Suspect]
     Indication: IRON OVERLOAD
     Dosage: 1500 MG, QD
     Route: 048
     Dates: start: 20110427

REACTIONS (3)
  - VISUAL ACUITY TESTS ABNORMAL [None]
  - VISION BLURRED [None]
  - VISUAL IMPAIRMENT [None]
